FAERS Safety Report 13025506 (Version 3)
Quarter: 2018Q2

REPORT INFORMATION
  Report Type: Spontaneous
  Country: DE (occurrence: DE)
  Receive Date: 20161214
  Receipt Date: 20180509
  Transmission Date: 20180711
  Serious: Yes (Congenital Anomaly, Other)
  Sender: FDA-Public Use
  Company Number: DE-DRREDDYS-GER/GER/16/0085322

PATIENT
  Age: 37 Year
  Sex: Female
  Weight: 70 kg

DRUGS (4)
  1. MARCUMAR [Concomitant]
     Active Substance: PHENPROCOUMON
     Indication: HYPERCOAGULATION
     Dosage: PATIENT^S FATHER WAS USING MARCUMAR FOR THROMBOPHILIA
     Dates: start: 20040701
  2. L-THYROXIN [Concomitant]
     Active Substance: LEVOTHYROXINE SODIUM
     Indication: HYPOTHYROIDISM
  3. CITALOPRAM [Suspect]
     Active Substance: CITALOPRAM HYDROBROMIDE
     Indication: ANXIETY DISORDER
     Route: 048
     Dates: start: 20110801, end: 20151001
  4. FOLIO FORTE (NEM) [Concomitant]
     Indication: PRODUCT USED FOR UNKNOWN INDICATION
     Dosage: MEDICATION WAS TAKEN BY THE MOTHER/PATIENT

REACTIONS (4)
  - Abortion spontaneous [Recovered/Resolved]
  - Paternal exposure during pregnancy [Unknown]
  - Foetal chromosome abnormality [Recovered/Resolved]
  - Paternal exposure timing unspecified [Unknown]
